FAERS Safety Report 5258997-6 (Version None)
Quarter: 2007Q1

REPORT INFORMATION
  Report Type: 
  Country: None (occurrence: None)
  Receive Date: 20070305
  Receipt Date: 20070222
  Transmission Date: 20070707
  Serious: Yes (Life-Threatening, Other)
  Sender: FDA-Public Use
  Company Number: 07H-163-0312092-00

PATIENT
  Age: 6 Month
  Sex: 0

DRUGS (1)
  1. SODIUM CHLORIDE 0.9% INJECTION, USP, FLEX. PLASTIC CONTAINER (SODIUM C [Suspect]
     Dosage: INTRAVENOUS
     Route: 042
     Dates: start: 20070220

REACTIONS (4)
  - CEREBRAL ARTERY EMBOLISM [None]
  - IATROGENIC INJURY [None]
  - OEDEMA [None]
  - PULMONARY EMBOLISM [None]
